FAERS Safety Report 24739302 (Version 3)
Quarter: 2025Q1

REPORT INFORMATION
  Report Type: Report from Study
  Country: CA (occurrence: CA)
  Receive Date: 20241216
  Receipt Date: 20250213
  Transmission Date: 20250409
  Serious: Yes (Hospitalization, Other)
  Sender: TAKEDA
  Company Number: CA-TAKEDA-2022TUS043799

PATIENT
  Age: 34 Year
  Sex: Female

DRUGS (15)
  1. VEDOLIZUMAB [Suspect]
     Active Substance: VEDOLIZUMAB
     Indication: Colitis ulcerative
  2. VEDOLIZUMAB [Suspect]
     Active Substance: VEDOLIZUMAB
  3. VEDOLIZUMAB [Suspect]
     Active Substance: VEDOLIZUMAB
  4. VEDOLIZUMAB [Suspect]
     Active Substance: VEDOLIZUMAB
  5. VEDOLIZUMAB [Suspect]
     Active Substance: VEDOLIZUMAB
  6. VEDOLIZUMAB [Suspect]
     Active Substance: VEDOLIZUMAB
  7. VEDOLIZUMAB [Suspect]
     Active Substance: VEDOLIZUMAB
  8. VEDOLIZUMAB [Suspect]
     Active Substance: VEDOLIZUMAB
     Indication: Colitis ulcerative
     Dosage: 108 MILLIGRAM, Q2WEEKS
     Dates: start: 202208
  9. Salofalk [Concomitant]
     Dosage: 2 GRAM, BID
  10. PREDNISONE [Concomitant]
     Active Substance: PREDNISONE
  11. PENTASA [Concomitant]
     Active Substance: MESALAMINE
     Dosage: 1 GRAM, QD
  12. CITALOPRAM [Concomitant]
     Active Substance: CITALOPRAM
  13. CANDESARTAN [Concomitant]
     Active Substance: CANDESARTAN
  14. POTASSIUM CHLORIDE [Concomitant]
     Active Substance: POTASSIUM CHLORIDE
  15. NIFEDIPINE [Concomitant]
     Active Substance: NIFEDIPINE

REACTIONS (10)
  - Eye swelling [Not Recovered/Not Resolved]
  - Swelling [Recovering/Resolving]
  - Swelling face [Recovering/Resolving]
  - Inflammation [Not Recovered/Not Resolved]
  - Blood potassium decreased [Recovered/Resolved]
  - Chest pain [Recovered/Resolved]
  - Blood pressure increased [Recovered/Resolved]
  - Rash [Not Recovered/Not Resolved]
  - Stress [Unknown]
  - Headache [Recovered/Resolved]

NARRATIVE: CASE EVENT DATE: 20250126
